APPROVED DRUG PRODUCT: MECLIZINE HYDROCHLORIDE
Active Ingredient: MECLIZINE HYDROCHLORIDE
Strength: 25MG
Dosage Form/Route: TABLET, CHEWABLE;ORAL
Application: A200791 | Product #001
Applicant: INVAGEN PHARMACEUTICALS INC
Approved: Feb 17, 2022 | RLD: No | RS: No | Type: DISCN